FAERS Safety Report 4627236-9 (Version None)
Quarter: 2005Q2

REPORT INFORMATION
  Report Type: 
  Country: None (occurrence: None)
  Receive Date: 20050401
  Receipt Date: 20050401
  Transmission Date: 20051028
  Serious: No
  Sender: FDA-Public Use
  Company Number: None

PATIENT
  Age: 55 Year
  Sex: Female
  Weight: 76 kg

DRUGS (10)
  1. MYLOTARG [Suspect]
     Indication: ACUTE MYELOID LEUKAEMIA
     Dosage: 17 MG OVER 2 HOURS INTRAVENOUS
     Route: 042
     Dates: start: 20050310, end: 20050310
  2. MYLOTARG [Suspect]
     Indication: ACUTE MYELOID LEUKAEMIA
     Dosage: 17 MG OVER 2 HOURS INTRAVENOUS
     Route: 042
     Dates: start: 20040327, end: 20040327
  3. GATIFLOXACIN [Concomitant]
  4. FLUCONAZOLE [Concomitant]
  5. ACYCLOVIR [Concomitant]
  6. PANTOPRAZOLE SODIUM [Concomitant]
  7. CHLORHEXIDIN [Concomitant]
  8. URSIDIOL [Concomitant]
  9. DAPTOMYCIN [Concomitant]
  10. MEROPENEM [Concomitant]

REACTIONS (2)
  - DYSPNOEA [None]
  - HYPOTENSION [None]
